FAERS Safety Report 6167269-7 (Version None)
Quarter: 2009Q2

REPORT INFORMATION
  Report Type: 
  Country: None (occurrence: None)
  Receive Date: 20090424
  Receipt Date: 20090416
  Transmission Date: 20091009
  Serious: Yes (Hospitalization, Other)
  Sender: FDA-Public Use
  Company Number: US-ELI_LILLY_AND_COMPANY-US200904003579

PATIENT
  Sex: Male

DRUGS (8)
  1. HUMALOG MIX 75/25 [Suspect]
  2. HUMALOG [Suspect]
  3. HUMULIN R [Suspect]
  4. HUMULIN R [Suspect]
  5. BYSTOLIC [Concomitant]
  6. JANUVIA [Concomitant]
  7. GLUMETZA [Concomitant]
  8. GLYBURIDE [Concomitant]

REACTIONS (14)
  - ASTHENIA [None]
  - BLOOD GLUCOSE INCREASED [None]
  - DIZZINESS [None]
  - DYSPNOEA [None]
  - EXPIRED DRUG ADMINISTERED [None]
  - FLUID RETENTION [None]
  - GAIT DISTURBANCE [None]
  - HEADACHE [None]
  - HYPERSENSITIVITY [None]
  - MACULAR DEGENERATION [None]
  - MEMORY IMPAIRMENT [None]
  - NAUSEA [None]
  - SYNCOPE [None]
  - URTICARIA [None]
